FAERS Safety Report 5756356-0 (Version None)
Quarter: 2008Q2

REPORT INFORMATION
  Report Type: 
  Country: None (occurrence: None)
  Receive Date: 20080528
  Receipt Date: 20080528
  Transmission Date: 20081010
  Serious: Yes (Other)
  Sender: FDA-Public Use
  Company Number: None

PATIENT
  Age: 62 Year
  Sex: Female
  Weight: 81.6475 kg

DRUGS (1)
  1. TRAMADOL HCL [Suspect]
     Indication: BURSITIS
     Dosage: 1 TABLE 2 X PER DAY PO
     Route: 048
     Dates: start: 20080125, end: 20080207

REACTIONS (5)
  - AGITATION [None]
  - BLOOD PRESSURE INCREASED [None]
  - BURSITIS [None]
  - HEART RATE INCREASED [None]
  - PAIN [None]
